FAERS Safety Report 10453173 (Version 1)
Quarter: 2014Q3

REPORT INFORMATION
  Report Type: Spontaneous
  Country: US (occurrence: None)
  Receive Date: 20140912
  Receipt Date: 20140912
  Transmission Date: 20150326
  Serious: No
  Sender: FDA-Public Use
  Company Number: None

PATIENT
  Age: 46 Year
  Sex: Female
  Weight: 102.51 kg

DRUGS (1)
  1. TECFIDERA [Suspect]
     Active Substance: DIMETHYL FUMARATE
     Indication: MULTIPLE SCLEROSIS
     Dosage: 1 TAB ONCE DAILY TAKEN BY MOUTH
     Route: 048
     Dates: start: 20140910, end: 20140910

REACTIONS (7)
  - Nausea [None]
  - Cold sweat [None]
  - Diarrhoea [None]
  - Abdominal pain [None]
  - Abdominal discomfort [None]
  - Gastroenteritis [None]
  - Decreased appetite [None]

NARRATIVE: CASE EVENT DATE: 20140910
